FAERS Safety Report 7020965-1 (Version None)
Quarter: 2010Q3

REPORT INFORMATION
  Report Type: 
  Country: None (occurrence: None)
  Receive Date: 20100929
  Receipt Date: 20100709
  Transmission Date: 20110219
  Serious: Yes (Other)
  Sender: FDA-Public Use
  Company Number: A0847361A

PATIENT
  Age: 24 Year
  Sex: Female

DRUGS (2)
  1. RELENZA [Suspect]
     Dosage: 2PUFF TWICE PER DAY
     Route: 055
     Dates: start: 20100201
  2. NO CONCURRENT MEDICATION [Concomitant]

REACTIONS (3)
  - ANAPHYLACTIC REACTION [None]
  - BRONCHOSPASM [None]
  - DYSPNOEA [None]
